FAERS Safety Report 4591202-2 (Version None)
Quarter: 2005Q1

REPORT INFORMATION
  Report Type: 
  Country: None (occurrence: None)
  Receive Date: 20050222
  Receipt Date: 20050211
  Transmission Date: 20050727
  Serious: Yes (Hospitalization, Other)
  Sender: FDA-Public Use
  Company Number: 2005-01-1861

PATIENT
  Age: 37 Year
  Sex: Female
  Weight: 90.7194 kg

DRUGS (3)
  1. CLARINEX [Suspect]
     Indication: HYPERSENSITIVITY
     Dosage: 1 TAB DIALY ORAL
     Route: 048
     Dates: start: 20040501, end: 20050105
  2. ADVIL COLD AND SINUS [Suspect]
     Indication: NASOPHARYNGITIS
     Dosage: PRN ORAL
     Route: 048
     Dates: end: 20050105
  3. ALLESSE 21 (ETHINYLESTRADIOL/LEVONORGESTREL) [Concomitant]

REACTIONS (1)
  - VENTRICULAR TACHYCARDIA [None]
